FAERS Safety Report 14004338 (Version 2)
Quarter: 2017Q3

REPORT INFORMATION
  Report Type: Spontaneous
  Country: US (occurrence: US)
  Receive Date: 20170922
  Receipt Date: 20170928
  Transmission Date: 20171128
  Serious: Yes (Other)
  Sender: FDA-Public Use
  Company Number: US-JNJFOC-20170802764

PATIENT
  Age: 55 Year
  Sex: Male
  Weight: 92.53 kg

DRUGS (13)
  1. AMLODIPINE [Concomitant]
     Active Substance: AMLODIPINE BESYLATE
     Route: 065
  2. METFORMIN [Concomitant]
     Active Substance: METFORMIN HYDROCHLORIDE
     Route: 065
  3. ATENOLOL. [Concomitant]
     Active Substance: ATENOLOL
     Route: 065
  4. INVOKANA [Suspect]
     Active Substance: CANAGLIFLOZIN
     Indication: TYPE 2 DIABETES MELLITUS
     Route: 048
     Dates: start: 201512
  5. FENOFIBRATE. [Concomitant]
     Active Substance: FENOFIBRATE
     Route: 065
  6. GABAPENTIN. [Concomitant]
     Active Substance: GABAPENTIN
     Route: 065
  7. LISINOPRIL. [Concomitant]
     Active Substance: LISINOPRIL
     Route: 065
  8. OMEPRAZOLE. [Concomitant]
     Active Substance: OMEPRAZOLE
     Route: 065
  9. INVOKANA [Suspect]
     Active Substance: CANAGLIFLOZIN
     Indication: TYPE 2 DIABETES MELLITUS
     Route: 048
     Dates: start: 201508
  10. DULOXETINE. [Concomitant]
     Active Substance: DULOXETINE
     Route: 065
  11. INVOKAMET [Suspect]
     Active Substance: CANAGLIFLOZIN\METFORMIN HYDROCHLORIDE
     Indication: TYPE 2 DIABETES MELLITUS
     Dosage: 150/1000 MG
     Route: 048
  12. ATORVASTATIN [Concomitant]
     Active Substance: ATORVASTATIN
     Route: 065
  13. PLAVIX [Concomitant]
     Active Substance: CLOPIDOGREL BISULFATE
     Route: 065

REACTIONS (6)
  - Inappropriate schedule of drug administration [Unknown]
  - Arterial insufficiency [Unknown]
  - Skin ulcer [Unknown]
  - Stent placement [Unknown]
  - Off label use [Unknown]
  - Peripheral artery bypass [Unknown]

NARRATIVE: CASE EVENT DATE: 201508
